FAERS Safety Report 14520980 (Version 2)
Quarter: 2018Q1

REPORT INFORMATION
  Report Type: Other
  Country: AU (occurrence: AU)
  Receive Date: 20180212
  Receipt Date: 20180227
  Transmission Date: 20180509
  Serious: No
  Sender: FDA-Public Use
  Company Number: AU-ALSI-201800103

PATIENT
  Age: 36 Year
  Sex: Male

DRUGS (3)
  1. ISOFLURANE. [Concomitant]
     Active Substance: ISOFLURANE
  2. NITROUS OXIDE. [Concomitant]
     Active Substance: NITROUS OXIDE
  3. OXYGEN 100% [Suspect]
     Active Substance: OXYGEN
     Indication: TRACHEOSTOMY
     Route: 050

REACTIONS (2)
  - Accident [Unknown]
  - Laryngeal oedema [Unknown]
